FAERS Safety Report 9168341 (Version 1)
Quarter: 2013Q1

REPORT INFORMATION
  Report Type: Spontaneous
  Country: ES (occurrence: ES)
  Receive Date: 20130318
  Receipt Date: 20130318
  Transmission Date: 20140127
  Serious: Yes (Hospitalization)
  Sender: FDA-Public Use
  Company Number: ES-ELI_LILLY_AND_COMPANY-ES201303004464

PATIENT
  Age: 77 Year
  Sex: Female

DRUGS (5)
  1. FORSTEO [Suspect]
     Indication: OSTEOPOROSIS
     Dosage: 20 UG, QD
     Route: 058
     Dates: start: 20080827, end: 200906
  2. IRON [Concomitant]
  3. FOLIC ACID [Concomitant]
  4. PARACETAMOL [Concomitant]
  5. OMEPRAZOLE [Concomitant]
     Indication: PROPHYLAXIS

REACTIONS (7)
  - Femur fracture [Not Recovered/Not Resolved]
  - Fall [Unknown]
  - Mitral valve disease [Unknown]
  - Post procedural infection [Unknown]
  - Decubitus ulcer [Unknown]
  - Hypoaesthesia [Unknown]
  - Mobility decreased [Unknown]
